FAERS Safety Report 9920551 (Version 1)
Quarter: 2014Q1

REPORT INFORMATION
  Report Type: Spontaneous
  Country: PL (occurrence: PL)
  Receive Date: 20140224
  Receipt Date: 20140224
  Transmission Date: 20141002
  Serious: Yes (Other)
  Sender: FDA-Public Use
  Company Number: PHHY2014PL019270

PATIENT
  Age: 55 Year
  Sex: Female
  Weight: 46 kg

DRUGS (6)
  1. METHOTREXATE [Suspect]
     Indication: PSORIATIC ARTHROPATHY
     Dosage: 25 MG, UNK
     Route: 058
     Dates: start: 19940306, end: 20130204
  2. ACIDUM FOLICUM [Concomitant]
     Dosage: 15 MG, QW
     Route: 048
     Dates: start: 19940306
  3. METYPRED [Concomitant]
     Dosage: 8 MG, UNK
     Route: 048
     Dates: start: 19931210
  4. ORTANOL [Concomitant]
     Dosage: 20 MG, UNK
     Route: 048
     Dates: start: 19931210
  5. DIAPREL MR [Concomitant]
     Dosage: 30 MG, UNK
     Route: 048
     Dates: start: 20130805
  6. VITRUM CALCIUM [Concomitant]
     Dosage: 1000 MG, UNK
     Route: 048
     Dates: start: 20130202

REACTIONS (5)
  - Fear of eating [Not Recovered/Not Resolved]
  - Asthenia [Not Recovered/Not Resolved]
  - Decreased appetite [Not Recovered/Not Resolved]
  - Nausea [Not Recovered/Not Resolved]
  - Vomiting [Not Recovered/Not Resolved]
